FAERS Safety Report 7175585 (Version 2)
Quarter: 2013Q1

REPORT INFORMATION
  Report Type: Spontaneous
  Country: NO (occurrence: None)
  Receive Date: 20091030
  Receipt Date: 20130117
  Transmission Date: 20140127
  Serious: Yes (Other)
  Sender: FDA-Public Use
  Company Number: 2009AP004289

PATIENT
  Sex: Female

DRUGS (2)
  1. CARBAMAZEPINE [Suspect]
     Dosage: 1200 MG;PO
  2. LEVETIRACETAM [Suspect]
     Dosage: 1800 MG;QD

REACTIONS (2)
  - SIMPLE PARTIAL SEIZURES [None]
  - MATERNAL EXPOSURE DURING PREGNANCY [None]
